FAERS Safety Report 24191272 (Version 5)
Quarter: 2024Q3

REPORT INFORMATION
  Report Type: Spontaneous
  Country: US (occurrence: US)
  Receive Date: 20240808
  Receipt Date: 20240914
  Transmission Date: 20241016
  Serious: Yes (Other)
  Sender: ABBVIE
  Company Number: US-ABBVIE-5869465

PATIENT
  Age: 71 Year
  Sex: Male
  Weight: 83 kg

DRUGS (2)
  1. IMBRUVICA [Suspect]
     Active Substance: IBRUTINIB
     Indication: B-cell small lymphocytic lymphoma
     Route: 048
     Dates: start: 202408
  2. IMBRUVICA [Suspect]
     Active Substance: IBRUTINIB
     Indication: B-cell small lymphocytic lymphoma
     Route: 048
     Dates: start: 202012, end: 20240805

REACTIONS (1)
  - Spinal operation [Unknown]

NARRATIVE: CASE EVENT DATE: 20220601
